FAERS Safety Report 26096547 (Version 2)
Quarter: 2025Q4

REPORT INFORMATION
  Report Type: Spontaneous
  Country: US (occurrence: US)
  Receive Date: 20251127
  Receipt Date: 20251212
  Transmission Date: 20260118
  Serious: Yes (Hospitalization, Other)
  Sender: AUTOLUS THERAPEUTICS
  Company Number: US-Autolus Ltd-2189402

PATIENT
  Age: 73 Year
  Sex: Female

DRUGS (1)
  1. AUCATZYL [Suspect]
     Active Substance: OBECABTAGENE AUTOLEUCEL
     Dates: start: 20251015, end: 20251015

REACTIONS (3)
  - Cytokine release syndrome [Unknown]
  - White blood cell count abnormal [Unknown]
  - Immune effector cell-associated neurotoxicity syndrome [Unknown]

NARRATIVE: CASE EVENT DATE: 20251114
